FAERS Safety Report 7664626-4 (Version None)
Quarter: 2011Q3

REPORT INFORMATION
  Report Type: 
  Country: None (occurrence: None)
  Receive Date: 20110806
  Receipt Date: 20110110
  Transmission Date: 20111222
  Serious: No
  Sender: FDA-Public Use
  Company Number: US-ABBOTT-11P-163-0696100-00

PATIENT
  Sex: Female
  Weight: 63.56 kg

DRUGS (3)
  1. CHOLESTEROL MEDICATION [Concomitant]
     Indication: PRODUCT USED FOR UNKNOWN INDICATION
  2. BLOOD PRESSURE MEDICATION [Concomitant]
     Indication: PRODUCT USED FOR UNKNOWN INDICATION
  3. NIASPAN [Suspect]
     Indication: BLOOD CHOLESTEROL
     Dosage: AT BEDTIME

REACTIONS (3)
  - ERYTHEMA [None]
  - BALANCE DISORDER [None]
  - RASH GENERALISED [None]
